FAERS Safety Report 18308573 (Version 5)
Quarter: 2021Q1

REPORT INFORMATION
  Report Type: Report from Study
  Country: CN (occurrence: CN)
  Receive Date: 20200924
  Receipt Date: 20210305
  Transmission Date: 20210419
  Serious: Yes (Hospitalization, Other)
  Sender: FDA-Public Use
  Company Number: CN-KARYOPHARM THERAPEUTICS, INC.-2020KPT001128

PATIENT
  Age: 61 Year
  Sex: Male

DRUGS (19)
  1. SELINEXOR [Suspect]
     Active Substance: SELINEXOR
     Indication: DIFFUSE LARGE B-CELL LYMPHOMA
     Dosage: 60 MG, 2X/WEEK
     Route: 048
     Dates: start: 20200812, end: 20200828
  2. DIPHENHYDRAMINE. [Concomitant]
     Active Substance: DIPHENHYDRAMINE
     Dosage: 20 MG, SINGLE
     Route: 030
     Dates: start: 20200921, end: 20200921
  3. DIPHENHYDRAMINE. [Concomitant]
     Active Substance: DIPHENHYDRAMINE
     Dosage: 20 MG, SINGLE
     Route: 030
     Dates: start: 20200929, end: 20200929
  4. DIPHENHYDRAMINE. [Concomitant]
     Active Substance: DIPHENHYDRAMINE
     Indication: PROPHYLAXIS
     Dosage: 20 MG, SINGLE
     Route: 030
     Dates: start: 20200913, end: 20200913
  5. DIPHENHYDRAMINE. [Concomitant]
     Active Substance: DIPHENHYDRAMINE
     Dosage: 20 MG, SINGLE
     Route: 030
     Dates: start: 20200925, end: 20200925
  6. CLONAZEPAM. [Concomitant]
     Active Substance: CLONAZEPAM
     Indication: INSOMNIA
     Dosage: 2 MG, QD
     Route: 048
     Dates: start: 2009
  7. DEXAMETHASONE. [Concomitant]
     Active Substance: DEXAMETHASONE
     Indication: DIFFUSE LARGE B-CELL LYMPHOMA
     Dosage: 10 MG, 3X/WEEK
     Route: 042
     Dates: start: 20200908, end: 20200910
  8. CISPLATIN. [Concomitant]
     Active Substance: CISPLATIN
     Indication: DIFFUSE LARGE B-CELL LYMPHOMA
     Dosage: 40 MG, 3X/WEEK
     Route: 042
     Dates: start: 20200908, end: 20200910
  9. BUDESONIDE ALMUS [Concomitant]
     Indication: PRODUCTIVE COUGH
     Dosage: 1 MG, BID
     Dates: start: 20200909
  10. FINASTERIDE. [Concomitant]
     Active Substance: FINASTERIDE
     Indication: BENIGN PROSTATIC HYPERPLASIA
     Dosage: 5 MG, QD
     Route: 048
     Dates: start: 2012
  11. ETOPOSIDE. [Concomitant]
     Active Substance: ETOPOSIDE
     Indication: DIFFUSE LARGE B-CELL LYMPHOMA
     Dosage: 0.1 G, 3X/WEEK
     Route: 042
     Dates: start: 20200908, end: 20200910
  12. AMBROXOL [Concomitant]
     Active Substance: AMBROXOL
     Indication: PRODUCTIVE COUGH
     Dosage: 15 MG, SINGLE
     Route: 042
     Dates: start: 20200909, end: 20200909
  13. AMBROXOL [Concomitant]
     Active Substance: AMBROXOL
     Dosage: 30 MG, TID
     Route: 048
     Dates: start: 20200909
  14. DIPHENHYDRAMINE. [Concomitant]
     Active Substance: DIPHENHYDRAMINE
     Dosage: 20 MG, SINGLE
     Route: 030
     Dates: start: 20200918, end: 20200918
  15. TAMSULOSIN HYDROCHLORIDE. [Concomitant]
     Active Substance: TAMSULOSIN HYDROCHLORIDE
     Indication: BENIGN PROSTATIC HYPERPLASIA
     Dosage: 0.2 MG, QD
     Route: 048
     Dates: start: 2012
  16. IFOSFAMIDE. [Concomitant]
     Active Substance: IFOSFAMIDE
     Indication: DIFFUSE LARGE B-CELL LYMPHOMA
     Dosage: 1.5 G, 3X/WEEK
     Route: 042
     Dates: start: 20200908, end: 20200910
  17. COMPOUND IPRATROPIUM BROMIDE [Concomitant]
     Active Substance: IPRATROPIUM BROMIDE
     Indication: PRODUCTIVE COUGH
     Dosage: 2.5 ML, BID
     Dates: start: 20200909
  18. DIPHENHYDRAMINE. [Concomitant]
     Active Substance: DIPHENHYDRAMINE
     Dosage: 20 MG, SINGLE
     Route: 030
     Dates: start: 20200917, end: 20200917
  19. DIPHENHYDRAMINE. [Concomitant]
     Active Substance: DIPHENHYDRAMINE
     Dosage: 20 MG, SINGLE
     Route: 030
     Dates: start: 20200927, end: 20200927

REACTIONS (2)
  - Neutrophil count decreased [Recovered/Resolved]
  - White blood cell count decreased [Recovering/Resolving]

NARRATIVE: CASE EVENT DATE: 20200914
